FAERS Safety Report 5315240-7 (Version None)
Quarter: 2007Q2

REPORT INFORMATION
  Report Type: 
  Country: None (occurrence: None)
  Receive Date: 20070427
  Receipt Date: 20070418
  Transmission Date: 20071010
  Serious: Yes (Other)
  Sender: FDA-Public Use
  Company Number: 155444USA

PATIENT
  Age: 65 Year
  Sex: Male

DRUGS (3)
  1. TERAZOSIN HCL [Suspect]
     Indication: BENIGN PROSTATIC HYPERPLASIA
     Dosage: ORAL
     Route: 048
  2. SERENOA REPENS [Suspect]
  3. TAMSULOSIN HCL [Suspect]

REACTIONS (2)
  - CHOROIDAL DETACHMENT [None]
  - VISUAL FIELD DEFECT [None]
